FAERS Safety Report 8098421-1 (Version None)
Quarter: 2012Q1

REPORT INFORMATION
  Report Type: 
  Country: None (occurrence: None)
  Receive Date: 20120131
  Receipt Date: 20120125
  Transmission Date: 20120608
  Serious: No
  Sender: FDA-Public Use
  Company Number: CA-JNJFOC-20120108638

PATIENT
  Age: 43 Year
  Sex: Female
  Weight: 81.65 kg

DRUGS (6)
  1. ACETAMINOPHEN [Suspect]
     Route: 048
  2. ACETAMINOPHEN [Suspect]
     Indication: ARTHRITIS
     Route: 048
  3. ASPIRIN [Concomitant]
  4. POTASSIUM [Concomitant]
  5. HYDROCHLOROTHIAZIDE [Concomitant]
  6. ACCUPRIL [Concomitant]

REACTIONS (1)
  - PRODUCT QUALITY ISSUE [None]
